FAERS Safety Report 23443617 (Version 7)
Quarter: 2024Q2

REPORT INFORMATION
  Report Type: Spontaneous
  Country: CA (occurrence: CA)
  Receive Date: 20240125
  Receipt Date: 20240501
  Transmission Date: 20240716
  Serious: Yes (Other)
  Sender: FDA-Public Use
  Company Number: CA-PFIZER INC-PV202300010367

PATIENT
  Age: 63 Year
  Sex: Male
  Weight: 65.5 kg

DRUGS (14)
  1. ZIRABEV [Suspect]
     Active Substance: BEVACIZUMAB-BVZR
     Indication: Colorectal cancer metastatic
     Dosage: 325 MG, EVERY 14 DAYS
     Route: 042
     Dates: end: 20230404
  2. ZIRABEV [Suspect]
     Active Substance: BEVACIZUMAB-BVZR
     Indication: Colon cancer
     Dosage: UNK
     Route: 042
     Dates: start: 20230207, end: 20230207
  3. ZIRABEV [Suspect]
     Active Substance: BEVACIZUMAB-BVZR
     Dosage: UNK
     Route: 042
     Dates: start: 20230221, end: 20230221
  4. ZIRABEV [Suspect]
     Active Substance: BEVACIZUMAB-BVZR
     Dosage: 325 MG
     Route: 042
     Dates: start: 2023
  5. ZIRABEV [Suspect]
     Active Substance: BEVACIZUMAB-BVZR
     Dosage: 325 MG, DAY 1
     Route: 042
     Dates: start: 20231124
  6. ZIRABEV [Suspect]
     Active Substance: BEVACIZUMAB-BVZR
     Dosage: 325 MG
     Route: 042
     Dates: start: 20240112
  7. FLUOROURACIL [Concomitant]
     Active Substance: FLUOROURACIL
     Indication: Chemotherapy
     Dosage: UNK, 3200 MG/SQUARE METRE LV5 INFUSION OVER 48 HOURS, EVERY 14 DAYS
  8. FLUOROURACIL [Concomitant]
     Active Substance: FLUOROURACIL
     Dosage: 3200 MG LV5 INFUSION OVER 48 HOURS, EVERY 14 DAYS
  9. IRINOTECAN [Concomitant]
     Active Substance: IRINOTECAN
     Indication: Chemotherapy
     Dosage: 165 MG/SQUARE METRE, EVERY 14 DAYS
  10. IRINOTECAN [Concomitant]
     Active Substance: IRINOTECAN
     Dosage: 165 MG, DAY 1
     Route: 042
  11. LEUCOVORIN [Concomitant]
     Active Substance: LEUCOVORIN\LEUCOVORIN CALCIUM
     Indication: Chemotherapy
     Dosage: UNK, 400 MG/SQUARE METRE, EVERY 14 DAYS
  12. LEUCOVORIN [Concomitant]
     Active Substance: LEUCOVORIN\LEUCOVORIN CALCIUM
     Dosage: 400 MG, DAY 1
     Route: 042
  13. OXALIPLATIN [Concomitant]
     Active Substance: OXALIPLATIN
     Indication: Chemotherapy
     Dosage: UNK, 85 MG/SQUARE METRE, EVERY 14 DAYS
  14. OXALIPLATIN [Concomitant]
     Active Substance: OXALIPLATIN
     Dosage: 85 MG, DAY 1

REACTIONS (8)
  - Malignant neoplasm of unknown primary site [Unknown]
  - Off label use [Unknown]
  - Intentional product use issue [Unknown]
  - Product dose omission issue [Unknown]
  - Neoplasm progression [Unknown]
  - Weight increased [Unknown]
  - Weight decreased [Unknown]
  - Body surface area decreased [Unknown]

NARRATIVE: CASE EVENT DATE: 20240223
